FAERS Safety Report 9823842 (Version 2)
Quarter: 2014Q1

REPORT INFORMATION
  Report Type: Spontaneous
  Country: US (occurrence: US)
  Receive Date: 20140116
  Receipt Date: 20140116
  Transmission Date: 20141002
  Serious: No
  Sender: FDA-Public Use
  Company Number: US-GILEAD-2011-0040054

PATIENT
  Age: 66 Year
  Sex: Female

DRUGS (5)
  1. LETAIRIS [Suspect]
     Indication: PULMONARY HYPERTENSION
     Route: 048
     Dates: start: 20110517
  2. LETAIRIS [Suspect]
     Indication: CHRONIC OBSTRUCTIVE PULMONARY DISEASE
  3. LETAIRIS [Suspect]
     Indication: SLEEP APNOEA SYNDROME
  4. LETAIRIS [Suspect]
     Indication: DIASTOLIC DYSFUNCTION
  5. LETAIRIS [Suspect]
     Indication: CARDIAC VALVE DISEASE

REACTIONS (4)
  - Muscle spasms [Not Recovered/Not Resolved]
  - Dyspnoea [Not Recovered/Not Resolved]
  - Oedema [Not Recovered/Not Resolved]
  - Abdominal discomfort [Not Recovered/Not Resolved]
